FAERS Safety Report 17109415 (Version 1)
Quarter: 2019Q4

REPORT INFORMATION
  Report Type: Spontaneous
  Country: FR (occurrence: FR)
  Receive Date: 20191204
  Receipt Date: 20191204
  Transmission Date: 20200122
  Serious: Yes (Life-Threatening)
  Sender: FDA-Public Use
  Company Number: FR-TEVA-2019-FR-1145614

PATIENT
  Age: 74 Year
  Sex: Female
  Weight: 74 kg

DRUGS (1)
  1. AMOXICILLIN. [Suspect]
     Active Substance: AMOXICILLIN
     Indication: ANTIBIOTIC PROPHYLAXIS
     Dosage: 2 G
     Route: 048
     Dates: start: 20190205, end: 20190205

REACTIONS (1)
  - Anaphylactic shock [Recovered/Resolved]

NARRATIVE: CASE EVENT DATE: 20190205
